FAERS Safety Report 14933239 (Version 1)
Quarter: 2018Q2

REPORT INFORMATION
  Report Type: Spontaneous
  Country: BR (occurrence: BR)
  Receive Date: 20180524
  Receipt Date: 20180524
  Transmission Date: 20180711
  Serious: Yes (Hospitalization, Other)
  Sender: FDA-Public Use
  Company Number: PHHY2018BR005013

PATIENT
  Sex: Female
  Weight: 70 kg

DRUGS (2)
  1. DIOVAN HCT [Suspect]
     Active Substance: HYDROCHLOROTHIAZIDE\VALSARTAN
     Indication: PRODUCT USED FOR UNKNOWN INDICATION
     Dosage: UNK
     Route: 065
  2. OLCADIL [Suspect]
     Active Substance: CLOXAZOLAM
     Indication: ANXIETY
     Dosage: 1 DF, QD (AT NIGHT)
     Route: 048

REACTIONS (5)
  - Pelvic fracture [Unknown]
  - Anxiety [Not Recovered/Not Resolved]
  - Blood pressure increased [Not Recovered/Not Resolved]
  - Arrhythmia [Not Recovered/Not Resolved]
  - Weight increased [Not Recovered/Not Resolved]
